FAERS Safety Report 8024763-1 (Version None)
Quarter: 2012Q1

REPORT INFORMATION
  Report Type: 
  Country: None (occurrence: None)
  Receive Date: 20120105
  Receipt Date: 20111222
  Transmission Date: 20120608
  Serious: Yes (Death)
  Sender: FDA-Public Use
  Company Number: IN-CTI_01423_2011

PATIENT
  Age: 24 Hour

DRUGS (1)
  1. CUROSURF [Suspect]
     Indication: PRODUCT USED FOR UNKNOWN INDICATION
     Dosage: 1.5 MILLILITERS TWICE
     Route: 007
     Dates: start: 20110629, end: 20110629

REACTIONS (1)
  - EXPIRED DRUG ADMINISTERED [None]
